FAERS Safety Report 8814324 (Version 1)
Quarter: 2012Q4

REPORT INFORMATION
  Report Type: Spontaneous
  Country: CA (occurrence: None)
  Receive Date: 20120925
  Receipt Date: 20120925
  Transmission Date: 20130627
  Serious: Yes (Hospitalization)
  Sender: FDA-Public Use
  Company Number: 2012-002018

PATIENT
  Age: 59 Year
  Sex: Female
  Weight: 59 kg

DRUGS (2)
  1. ACTONEL (RISEDRONATE SODIUM) TABLET, 35MG [Suspect]
     Indication: OSTEOPOROSIS
     Dosage: 35 mg once weekly, oral
     Route: 048
     Dates: start: 2004
  2. CALCIUM [Concomitant]

REACTIONS (2)
  - Atypical femur fracture [None]
  - Femur fracture [None]
